FAERS Safety Report 10809560 (Version 1)
Quarter: 2015Q1

REPORT INFORMATION
  Report Type: Spontaneous
  Country: US (occurrence: None)
  Receive Date: 20150213
  Receipt Date: 20150213
  Transmission Date: 20150721
  Serious: No
  Sender: FDA-Public Use
  Company Number: None

PATIENT
  Age: 64 Year
  Sex: Female
  Weight: 55.79 kg

DRUGS (1)
  1. ZETIA [Suspect]
     Active Substance: EZETIMIBE
     Indication: HIGH DENSITY LIPOPROTEIN INCREASED
     Dosage: 10 MG 1 TABLET DAILY ORAL
     Route: 048
     Dates: start: 20141111

REACTIONS (2)
  - Myalgia [None]
  - Erythema [None]
